FAERS Safety Report 19737693 (Version 1)
Quarter: 2021Q3

REPORT INFORMATION
  Report Type: Spontaneous
  Country: US (occurrence: US)
  Receive Date: 20210821
  Receipt Date: 20210821
  Transmission Date: 20211014
  Serious: Yes (Life-Threatening)
  Sender: FDA-Public Use
  Company Number: None

PATIENT
  Age: 49 Year
  Sex: Female

DRUGS (1)
  1. REGEN?COV [Suspect]
     Active Substance: CASIRIVIMAB\IMDEVIMAB
     Indication: COVID-19
     Route: 041

REACTIONS (6)
  - Skin discolouration [None]
  - Swollen tongue [None]
  - Chest pain [None]
  - Swelling face [None]
  - Dyspnoea [None]
  - Lip swelling [None]

NARRATIVE: CASE EVENT DATE: 20210821
